FAERS Safety Report 12340757 (Version 1)
Quarter: 2016Q2

REPORT INFORMATION
  Report Type: Spontaneous
  Country: US (occurrence: None)
  Receive Date: 20160505
  Receipt Date: 20160505
  Transmission Date: 20160815
  Serious: Yes (Other)
  Sender: FDA-Public Use
  Company Number: None

PATIENT
  Age: 20 Year
  Sex: Female
  Weight: 58.97 kg

DRUGS (7)
  1. CIPRO [Suspect]
     Active Substance: CIPROFLOXACIN HYDROCHLORIDE
     Indication: DEPRESSION
     Route: 048
     Dates: start: 20160223, end: 20160323
  2. VITAMIN B-6 [Concomitant]
     Active Substance: PYRIDOXINE
  3. ZINC [Concomitant]
     Active Substance: ZINC\ZINC CHLORIDE
  4. CALCIUM [Concomitant]
     Active Substance: CALCIUM
  5. BUPROPION, 150 MG [Suspect]
     Active Substance: BUPROPION
  6. VITAMIN B12 [Concomitant]
     Active Substance: CYANOCOBALAMIN
  7. MAGNESIUM [Concomitant]
     Active Substance: MAGNESIUM

REACTIONS (6)
  - Pain in extremity [None]
  - Nerve injury [None]
  - Spinal pain [None]
  - Paraesthesia [None]
  - Neck pain [None]
  - Headache [None]

NARRATIVE: CASE EVENT DATE: 20160228
